FAERS Safety Report 12809004 (Version 1)
Quarter: 2016Q4

REPORT INFORMATION
  Report Type: Spontaneous
  Country: DE (occurrence: DE)
  Receive Date: 20161004
  Receipt Date: 20161004
  Transmission Date: 20170207
  Serious: Yes (Other)
  Sender: FDA-Public Use
  Company Number: DE-PFIZER INC-2016452576

PATIENT
  Sex: Male
  Weight: 3.74 kg

DRUGS (4)
  1. VENLAFAXINE HCL [Suspect]
     Active Substance: VENLAFAXINE HYDROCHLORIDE
     Indication: DEPRESSION
     Dosage: 150 MG, DAILY (1 TRIMESTER) (0. - 38.1. GESTATIONAL WEEK)
     Route: 064
     Dates: start: 20150913, end: 20160606
  2. VOMEX A [Suspect]
     Active Substance: DIMENHYDRINATE
     Indication: VOMITING IN PREGNANCY
     Dosage: 150 [MG/D ]/ DOSAGE MAX. 150 MG/D. LONG TERM USE, BUT FREQUENCY NOT KNOWN, TRIMESTER: LONG TERM EXPO
     Route: 064
  3. FEMIBION [Concomitant]
     Active Substance: VITAMINS
     Indication: VITAMIN SUPPLEMENTATION
     Dosage: 1. TRIMESTER; 11.2. - 38.1. GESTATIONAL WEEK
     Route: 064
     Dates: start: 20151201, end: 20160606
  4. VENLAFAXINE HCL [Suspect]
     Active Substance: VENLAFAXINE HYDROCHLORIDE
     Dosage: 75MG/ DAY (IN LAST TRIMESTER TO 75 MG/D
     Route: 064
     Dates: start: 20150913, end: 20160606

REACTIONS (3)
  - Maternal exposure during pregnancy [Recovered/Resolved with Sequelae]
  - Pyloric stenosis [Recovered/Resolved with Sequelae]
  - Breech presentation [Recovered/Resolved]
